FAERS Safety Report 20506986 (Version 3)
Quarter: 2022Q2

REPORT INFORMATION
  Report Type: Spontaneous
  Country: None (occurrence: IT)
  Receive Date: 20220223
  Receipt Date: 20220401
  Transmission Date: 20220721
  Serious: Yes (Other)
  Sender: FDA-Public Use
  Company Number: IT-Stallergenes SAS-2126144

PATIENT
  Sex: Male

DRUGS (2)
  1. ORALAIR [Suspect]
     Active Substance: ANTHOXANTHUM ODORATUM POLLEN\DACTYLIS GLOMERATA POLLEN\LOLIUM PERENNE POLLEN\PHLEUM PRATENSE POLLEN\
     Indication: Hypersensitivity
     Route: 048
  2. ALLERGENIC EXTRACTS [Suspect]
     Active Substance: ALLERGENIC EXTRACTS
     Route: 060

REACTIONS (4)
  - Vision blurred [Not Recovered/Not Resolved]
  - Eye discharge [Not Recovered/Not Resolved]
  - Eye injury [Not Recovered/Not Resolved]
  - Vernal keratoconjunctivitis [Not Recovered/Not Resolved]
